FAERS Safety Report 6006300-6 (Version None)
Quarter: 2008Q4

REPORT INFORMATION
  Report Type: 
  Country: None (occurrence: None)
  Receive Date: 20081217
  Receipt Date: 20081212
  Transmission Date: 20090506
  Serious: Yes (Death, Other)
  Sender: FDA-Public Use
  Company Number: CH-WYE-G02764108

PATIENT
  Age: 56 Year
  Sex: Male

DRUGS (10)
  1. TAZOBACTAM [Suspect]
     Dosage: DOSE AND FREQUENCY UNKNOWN
     Route: 042
     Dates: start: 20080830, end: 20080101
  2. TAZOBACTAM [Suspect]
     Dosage: DOSE AND FREQUENCY UNKNOWN
     Dates: start: 20080101, end: 20080909
  3. VANCOMYCIN HCL [Suspect]
     Dosage: 1000 MG, CYCLIC FREQUENCY
     Dates: start: 20080830, end: 20080909
  4. CORDARONE [Suspect]
     Dosage: 300 MG PRN
     Dates: end: 20080909
  5. DOBUTAMINE HCL [Concomitant]
     Dosage: DOSE AND FREQUENCY AS NECESSARY
     Dates: end: 20080909
  6. FLAGYL [Concomitant]
     Dates: start: 20080830, end: 20080909
  7. FENTANYL-100 [Concomitant]
     Dosage: DOSE AND FREQUENCY AS NECESSARY
     Dates: end: 20080909
  8. NORADRENALINE [Concomitant]
     Dosage: DOSE AND FREQUENCY AS NECESSARY
     Dates: end: 20080909
  9. DIFLUCAN [Suspect]
     Indication: ORAL CANDIDIASIS
     Dates: start: 20080830, end: 20080909
  10. PROPOFOL [Suspect]
     Dosage: DOSE AND FREQUENCY AS NECESSARY
     Dates: end: 20080909

REACTIONS (6)
  - ARTERIOSCLEROSIS [None]
  - CARDIO-RESPIRATORY ARREST [None]
  - ENCEPHALOPATHY [None]
  - EXTRASYSTOLES [None]
  - HYPERKALAEMIA [None]
  - NEUROLOGICAL DECOMPENSATION [None]
